FAERS Safety Report 18813837 (Version 2)
Quarter: 2021Q1

REPORT INFORMATION
  Report Type: Spontaneous
  Country: US (occurrence: US)
  Receive Date: 20210201
  Receipt Date: 20210212
  Transmission Date: 20210419
  Serious: Yes (Life-Threatening, Hospitalization, Other)
  Sender: FDA-Public Use
  Company Number: US-HIKMA PHARMACEUTICALS USA INC.-US-H14001-21-53498

PATIENT
  Age: 10 Year
  Sex: Male
  Weight: 27.5 kg

DRUGS (7)
  1. CLONIDINE. [Concomitant]
     Active Substance: CLONIDINE
     Indication: BEHAVIOUR DISORDER
     Dosage: UNKNOWN
     Route: 065
  2. FLUPHENAZINE [Suspect]
     Active Substance: FLUPHENAZINE
     Indication: BEHAVIOUR DISORDER
     Dosage: 2.5MG/5ML; DOSE OF 2.5MG FOR THREE DAYS
     Route: 065
  3. FLUPHENAZINE [Suspect]
     Active Substance: FLUPHENAZINE
     Dosage: 2.5MG/5ML ELIXIR AT A DOSE OF 2.5MG FOR THREE DAYS, THEN 5MG DAILY
     Route: 065
  4. CANNABIDIOL [Concomitant]
     Active Substance: CANNABIDIOL
     Indication: BEHAVIOUR DISORDER
     Dosage: UNKNOWN
     Route: 065
  5. VALPROIC ACID. [Concomitant]
     Active Substance: VALPROIC ACID
     Indication: BEHAVIOUR DISORDER
     Dosage: UNKNOWN
     Route: 065
  6. RISPERIDONE. [Suspect]
     Active Substance: RISPERIDONE
     Indication: BEHAVIOUR DISORDER
     Route: 065
  7. CLOBAZAM. [Concomitant]
     Active Substance: CLOBAZAM
     Indication: BEHAVIOUR DISORDER
     Dosage: UNKNOWN
     Route: 065

REACTIONS (2)
  - Encephalopathy [Recovered/Resolved]
  - Neuroleptic malignant syndrome [Recovered/Resolved]
